FAERS Safety Report 5507675-4 (Version None)
Quarter: 2007Q4

REPORT INFORMATION
  Report Type: 
  Country: None (occurrence: None)
  Receive Date: 20071106
  Receipt Date: 20071101
  Transmission Date: 20080405
  Serious: Yes (Other)
  Sender: FDA-Public Use
  Company Number: A0691023A

PATIENT
  Age: 54 Year
  Sex: Female

DRUGS (7)
  1. REQUIP [Suspect]
     Indication: RESTLESS LEGS SYNDROME
     Route: 048
     Dates: start: 20040101, end: 20071031
  2. CYMBALTA [Concomitant]
  3. NEXIUM [Concomitant]
  4. LYRICA [Concomitant]
  5. VICODIN [Concomitant]
  6. SYMBICORT [Concomitant]
  7. DICYCLOMINE [Concomitant]

REACTIONS (2)
  - INTERSTITIAL LUNG DISEASE [None]
  - PULMONARY FIBROSIS [None]
